FAERS Safety Report 20995097 (Version 1)
Quarter: 2022Q2

REPORT INFORMATION
  Report Type: Spontaneous
  Country: US (occurrence: US)
  Receive Date: 20220622
  Receipt Date: 20220622
  Transmission Date: 20220721
  Serious: Yes (Hospitalization)
  Sender: FDA-Public Use
  Company Number: US-INCYTE CORPORATION-2022IN006045

PATIENT

DRUGS (1)
  1. JAKAFI [Suspect]
     Active Substance: RUXOLITINIB
     Indication: Chronic myeloid leukaemia
     Dosage: 20 MILLIGRAM, QD
     Route: 048
     Dates: start: 20210625

REACTIONS (4)
  - Blood potassium decreased [Recovered/Resolved]
  - Urinary tract infection [Recovered/Resolved]
  - Tongue blistering [Unknown]
  - Off label use [Unknown]

NARRATIVE: CASE EVENT DATE: 20210625
